FAERS Safety Report 24071309 (Version 1)
Quarter: 2024Q3

REPORT INFORMATION
  Report Type: Report from Study
  Country: DE (occurrence: DE)
  Receive Date: 20240710
  Receipt Date: 20240710
  Transmission Date: 20241017
  Serious: No
  Sender: ROCHE
  Company Number: DE-ROCHE-3519398

PATIENT
  Age: 10 Year
  Sex: Female
  Weight: 53.0 kg

DRUGS (2)
  1. EVRYSDI [Suspect]
     Active Substance: RISDIPLAM
     Indication: Spinal muscular atrophy
     Dosage: LAST DOSE: 09/FEB/2024
     Route: 048
     Dates: start: 20210903
  2. CHOLECALCIFEROL [Concomitant]
     Active Substance: CHOLECALCIFEROL

REACTIONS (3)
  - Palpitations [Not Recovered/Not Resolved]
  - Headache [Not Recovered/Not Resolved]
  - Mental disorder [Not Recovered/Not Resolved]
